FAERS Safety Report 22040680 (Version 1)
Quarter: 2023Q1

REPORT INFORMATION
  Report Type: Spontaneous
  Country: US (occurrence: US)
  Receive Date: 20230227
  Receipt Date: 20230227
  Transmission Date: 20230418
  Serious: Yes (Other)
  Sender: FDA-Public Use
  Company Number: US-TEVA-2023-US-2859409

PATIENT
  Age: 79 Year
  Sex: Female

DRUGS (5)
  1. ESTRADIOL [Suspect]
     Active Substance: ESTRADIOL
     Indication: Vaginal haemorrhage
     Dosage: 10 MCG   ,THREES TIMES A WEEK
     Route: 065
     Dates: start: 20230112
  2. ESTRADIOL [Suspect]
     Active Substance: ESTRADIOL
     Indication: Atrophic vulvovaginitis
     Dosage: 10 MCG   ,ONCE A WEEK
     Route: 065
     Dates: start: 2023
  3. GEMTESA [Concomitant]
     Active Substance: VIBEGRON
     Indication: Incontinence
     Dosage: 75 MG
  4. SOTALOL [Concomitant]
     Active Substance: SOTALOL
     Indication: Product used for unknown indication
     Dosage: 160 MILLIGRAM DAILY;
  5. METOPROLOL [Concomitant]
     Active Substance: METOPROLOL
     Indication: Product used for unknown indication
     Dosage: 25 MILLIGRAM DAILY;

REACTIONS (10)
  - Arrhythmia [Unknown]
  - Breast pain [Unknown]
  - Breast disorder [Unknown]
  - Back pain [Unknown]
  - Chest discomfort [Unknown]
  - Breast enlargement [Unknown]
  - Constipation [Unknown]
  - Alopecia [Unknown]
  - Feeling abnormal [Unknown]
  - Intentional dose omission [Unknown]

NARRATIVE: CASE EVENT DATE: 20230101
